FAERS Safety Report 5390987-5 (Version None)
Quarter: 2007Q3

REPORT INFORMATION
  Report Type: 
  Country: None (occurrence: None)
  Receive Date: 20070716
  Receipt Date: 20050407
  Transmission Date: 20080115
  Serious: Yes (Hospitalization)
  Sender: FDA-Public Use
  Company Number: MPS1-10358

PATIENT
  Age: 15 Month
  Sex: Male
  Weight: 7.6 kg

DRUGS (1)
  1. ALDURAZYME [Suspect]
     Indication: MUCOPOLYSACCHARIDOSIS I
     Dosage: 5.8 MG QWK IV
     Route: 042
     Dates: start: 20040914

REACTIONS (1)
  - PNEUMONIA [None]
